FAERS Safety Report 14940295 (Version 1)
Quarter: 2018Q2

REPORT INFORMATION
  Report Type: Report from Study
  Country: BE (occurrence: BE)
  Receive Date: 20180525
  Receipt Date: 20180525
  Transmission Date: 20180711
  Serious: No
  Sender: FDA-Public Use
  Company Number: BE-SA-2017SA072405

PATIENT
  Age: 40 Year
  Sex: Female

DRUGS (1)
  1. ALEMTUZUMAB [Suspect]
     Active Substance: ALEMTUZUMAB
     Indication: MULTIPLE SCLEROSIS
     Dosage: 12 MG,UNK
     Route: 041
     Dates: end: 20170123

REACTIONS (9)
  - Contusion [Unknown]
  - Stress [Unknown]
  - Influenza [Recovered/Resolved]
  - Musculoskeletal disorder [Unknown]
  - Limb discomfort [Recovered/Resolved]
  - Swelling [Unknown]
  - Haematoma [Unknown]
  - Weight increased [Unknown]
  - Fall [Unknown]

NARRATIVE: CASE EVENT DATE: 20170418
